FAERS Safety Report 6526880-1 (Version None)
Quarter: 2010Q1

REPORT INFORMATION
  Report Type: 
  Country: None (occurrence: None)
  Receive Date: 20100105
  Receipt Date: 20091221
  Transmission Date: 20100710
  Serious: Yes (Hospitalization)
  Sender: FDA-Public Use
  Company Number: GB-MYLANLABS-2009S1021693

PATIENT
  Age: 16 Month
  Sex: Female

DRUGS (6)
  1. CLONAZEPAM [Suspect]
     Indication: EPILEPSY
  2. VIGABATRIN [Suspect]
     Indication: EPILEPSY
  3. LEVETIRACETAM [Suspect]
     Indication: EPILEPSY
  4. LEVETIRACETAM [Suspect]
  5. CLOBAZAM [Concomitant]
     Indication: EPILEPSY
  6. CEFUROXIME [Concomitant]
     Indication: RESPIRATORY DEPRESSION
     Route: 042

REACTIONS (3)
  - BLISTER [None]
  - SOMNOLENCE [None]
  - SWELLING FACE [None]
